FAERS Safety Report 20775655 (Version 1)
Quarter: 2022Q2

REPORT INFORMATION
  Report Type: Spontaneous
  Country: RU (occurrence: RU)
  Receive Date: 20220502
  Receipt Date: 20220502
  Transmission Date: 20220720
  Serious: Yes (Other)
  Sender: FDA-Public Use
  Company Number: RU-Merck Healthcare KGaA-9315851

PATIENT
  Age: 55 Year
  Sex: Female

DRUGS (14)
  1. ERBITUX [Suspect]
     Active Substance: CETUXIMAB
     Indication: Colon cancer
     Dosage: UNK UNK, UNKNOWN
     Route: 065
     Dates: start: 20180723, end: 20181125
  2. ERBITUX [Suspect]
     Active Substance: CETUXIMAB
     Dosage: UNK UNK, UNKNOWN
     Route: 065
     Dates: start: 20181212, end: 20191206
  3. LEUCOVORIN [Concomitant]
     Active Substance: LEUCOVORIN
     Indication: Colon cancer
     Dosage: UNK, UNKNOWN (4 COURSES)
     Route: 065
     Dates: start: 20180523, end: 20180708
  4. LEUCOVORIN [Concomitant]
     Active Substance: LEUCOVORIN
     Dosage: UNK, UNKNOWN (7 COURSES)
     Route: 065
     Dates: start: 20180723, end: 20181125
  5. LEUCOVORIN [Concomitant]
     Active Substance: LEUCOVORIN
     Dosage: UNK, UNKNOWN
     Route: 065
     Dates: start: 20181212, end: 20190906
  6. LEUCOVORIN [Concomitant]
     Active Substance: LEUCOVORIN
     Dosage: UNK, UNKNOWN (4 COURSES)
     Route: 065
     Dates: start: 20190920, end: 20191103
  7. FLUOROURACIL [Concomitant]
     Active Substance: FLUOROURACIL
     Indication: Colon cancer
     Dosage: UNK, UNKNOWN (4 COURSES)
     Route: 065
     Dates: start: 20180523, end: 20180708
  8. FLUOROURACIL [Concomitant]
     Active Substance: FLUOROURACIL
     Dosage: UNK, UNKNOWN (7 COURSES)
     Route: 065
     Dates: start: 20180723, end: 20181125
  9. FLUOROURACIL [Concomitant]
     Active Substance: FLUOROURACIL
     Dosage: UNK, UNKNOWN
     Route: 065
     Dates: start: 20181212, end: 20190906
  10. FLUOROURACIL [Concomitant]
     Active Substance: FLUOROURACIL
     Dosage: UNK, UNKNOWN (4 COURSES)
     Route: 065
     Dates: start: 20190920, end: 20191103
  11. IRINOTECAN [Concomitant]
     Active Substance: IRINOTECAN
     Indication: Colon cancer
     Dosage: UNK, UNKNOWN (7 COURSES)
     Route: 065
     Dates: start: 20180723, end: 20181125
  12. OXALIPLATIN [Concomitant]
     Active Substance: OXALIPLATIN
     Indication: Colon cancer
     Dosage: UNK, UNKNOWN (6 COURSES)
     Route: 065
     Dates: start: 201703, end: 201709
  13. OXALIPLATIN [Concomitant]
     Active Substance: OXALIPLATIN
     Dosage: UNK, UNKNOWN (4 COURSES)
     Route: 065
     Dates: start: 20180523, end: 20180708
  14. OXALIPLATIN [Concomitant]
     Active Substance: OXALIPLATIN
     Dosage: UNK, UNKNOWN (4 COURSES)
     Route: 065
     Dates: start: 20190920, end: 20191103

REACTIONS (1)
  - Neuropathy peripheral [Unknown]
